FAERS Safety Report 15821393 (Version 1)
Quarter: 2019Q1

REPORT INFORMATION
  Report Type: Spontaneous
  Country: PL (occurrence: PL)
  Receive Date: 20190114
  Receipt Date: 20190114
  Transmission Date: 20190417
  Serious: Yes (Hospitalization, Other)
  Sender: FDA-Public Use
  Company Number: PL-MYLANLABS-2019M1002047

PATIENT
  Age: 74 Year
  Sex: Female
  Weight: 83 kg

DRUGS (17)
  1. DIUVER [Concomitant]
     Active Substance: TORSEMIDE
     Indication: PRODUCT USED FOR UNKNOWN INDICATION
     Dosage: UNK
  2. AUGMENTIN [Concomitant]
     Active Substance: AMOXICILLIN\CLAVULANATE POTASSIUM
     Indication: PRODUCT USED FOR UNKNOWN INDICATION
     Dosage: UNK
  3. MIFLONIDE [Concomitant]
     Active Substance: BUDESONIDE
     Indication: PRODUCT USED FOR UNKNOWN INDICATION
     Dosage: UNK
  4. PRADAXA [Concomitant]
     Active Substance: DABIGATRAN ETEXILATE MESYLATE
     Indication: PRODUCT USED FOR UNKNOWN INDICATION
     Dosage: UNK
  5. TULIP                              /01326102/ [Concomitant]
     Active Substance: ATORVASTATIN CALCIUM
     Indication: PRODUCT USED FOR UNKNOWN INDICATION
     Dosage: UNK
  6. BISOCARD [Suspect]
     Active Substance: BISOPROLOL
     Indication: ATRIAL FIBRILLATION
  7. ATORIS [Concomitant]
     Active Substance: ATORVASTATIN CALCIUM
     Indication: PRODUCT USED FOR UNKNOWN INDICATION
     Dosage: UNK
  8. VALSARTAN. [Concomitant]
     Active Substance: VALSARTAN
     Indication: CARDIAC FAILURE
     Route: 048
     Dates: start: 20160623
  9. NOLPAZA [Concomitant]
     Active Substance: PANTOPRAZOLE SODIUM
     Indication: PRODUCT USED FOR UNKNOWN INDICATION
     Dosage: UNK
     Dates: start: 20160719
  10. BIOFOL                             /00566702/ [Concomitant]
     Indication: PRODUCT USED FOR UNKNOWN INDICATION
     Dosage: UNK
  11. LCZ 696 [Suspect]
     Active Substance: SACUBITRIL\VALSARTAN
     Indication: CARDIAC FAILURE
     Dosage: 200 MILLIGRAM, QD (200 MG, BID)
     Route: 048
     Dates: start: 20160705, end: 20160726
  12. BISOCARD [Suspect]
     Active Substance: BISOPROLOL
     Indication: HYPERTENSION
     Dosage: 5 MILLIGRAM, QD
     Route: 048
     Dates: start: 20161108
  13. OXIDIL                             /00288001/ [Concomitant]
     Indication: PRODUCT USED FOR UNKNOWN INDICATION
     Dosage: UNK
  14. RYTMONORM [Suspect]
     Active Substance: PROPAFENONE
     Dosage: 150 MILLIGRAM, QD
     Route: 048
     Dates: start: 2016, end: 20161105
  15. RYTMONORM [Suspect]
     Active Substance: PROPAFENONE
     Indication: ATRIAL FIBRILLATION
     Dosage: 150 MILLIGRAM, QD
     Route: 048
     Dates: start: 201607
  16. RYTMONORM [Suspect]
     Active Substance: PROPAFENONE
     Dosage: 150 MILLIGRAM, QD
     Route: 048
     Dates: start: 20161106
  17. MILURIT [Concomitant]
     Active Substance: ALLOPURINOL
     Indication: PRODUCT USED FOR UNKNOWN INDICATION
     Dosage: UNK

REACTIONS (10)
  - Pneumonia [Recovered/Resolved]
  - Cardiac failure chronic [Recovered/Resolved]
  - Dyspnoea [Recovered/Resolved]
  - Chronic obstructive pulmonary disease [Recovered/Resolved]
  - Anaemia megaloblastic [Recovered/Resolved]
  - Infective exacerbation of chronic obstructive airways disease [Recovered/Resolved]
  - Respiratory tract infection [Recovered/Resolved]
  - Angina pectoris [Recovered/Resolved]
  - Atrial fibrillation [Recovered/Resolved]
  - Asthenia [Recovering/Resolving]

NARRATIVE: CASE EVENT DATE: 20160713
